FAERS Safety Report 5229038-1 (Version None)
Quarter: 2007Q1

REPORT INFORMATION
  Report Type: 
  Country: None (occurrence: None)
  Receive Date: 20061201
  Receipt Date: 20060915
  Transmission Date: 20070707
  Serious: No
  Sender: FDA-Public Use
  Company Number: US200609004493

PATIENT
  Age: 50 Year
  Sex: Female

DRUGS (1)
  1. CYMBALTA [Suspect]
     Dosage: 60 MG, 2/D

REACTIONS (3)
  - DYSPNOEA [None]
  - HYPERHIDROSIS [None]
  - SYSTEMIC LUPUS ERYTHEMATOSUS [None]
